FAERS Safety Report 16534529 (Version 1)
Quarter: 2019Q3

REPORT INFORMATION
  Report Type: Report from Study
  Country: US (occurrence: US)
  Receive Date: 20190705
  Receipt Date: 20190705
  Transmission Date: 20191004
  Serious: Yes (Death, Life-Threatening, Other)
  Sender: FDA-Public Use
  Company Number: PHHY2019US152136

PATIENT
  Age: 18 Year
  Sex: Male

DRUGS (3)
  1. KYMRIAH [Suspect]
     Active Substance: TISAGENLECLEUCEL
     Indication: DIFFUSE LARGE B-CELL LYMPHOMA
     Dosage: ONCE/SINGLE
     Route: 041
  2. CYCLOPHOSPHAMIDE. [Concomitant]
     Active Substance: CYCLOPHOSPHAMIDE
     Indication: PRODUCT USED FOR UNKNOWN INDICATION
     Route: 065
  3. FLUDARABINE [Concomitant]
     Active Substance: FLUDARABINE PHOSPHATE
     Indication: PRODUCT USED FOR UNKNOWN INDICATION
     Route: 065

REACTIONS (11)
  - Diffuse large B-cell lymphoma [Fatal]
  - Nephropathy toxic [Unknown]
  - Hypogammaglobulinaemia [Unknown]
  - Cytopenia [Unknown]
  - Hepatic failure [Unknown]
  - Disseminated intravascular coagulation [Unknown]
  - Hypoxia [Unknown]
  - Hepatotoxicity [Unknown]
  - Malignant neoplasm progression [Fatal]
  - Cytokine release syndrome [Unknown]
  - Pyrexia [Unknown]
